FAERS Safety Report 10171543 (Version 1)
Quarter: 2014Q2

REPORT INFORMATION
  Report Type: Spontaneous
  Country: FR (occurrence: None)
  Receive Date: 20140512
  Receipt Date: 20140512
  Transmission Date: 20141212
  Serious: Yes (Other)
  Sender: FDA-Public Use
  Company Number: SYM-2014-20201

PATIENT
  Age: 48 Year
  Sex: Male

DRUGS (3)
  1. FLAGYL [Suspect]
     Indication: PRODUCT USED FOR UNKNOWN INDICATION
     Route: 058
     Dates: start: 20131211, end: 20140106
  2. CEFEPIME [Suspect]
     Indication: PRODUCT USED FOR UNKNOWN INDICATION
     Route: 042
     Dates: start: 20131206
  3. DEPAKINE CHRONO (ERGENYL CHRONO) (VALPROIC ACID, VALPROATE SODIUM) [Concomitant]

REACTIONS (3)
  - Myoclonus [None]
  - Encephalopathy [None]
  - General physical health deterioration [None]
